FAERS Safety Report 6681891-0 (Version None)
Quarter: 2010Q2

REPORT INFORMATION
  Report Type: 
  Country: None (occurrence: None)
  Receive Date: 20100414
  Receipt Date: 20100402
  Transmission Date: 20101027
  Serious: Yes (Hospitalization)
  Sender: FDA-Public Use
  Company Number: US-GENENTECH-300105

PATIENT
  Sex: Male
  Weight: 60 kg

DRUGS (10)
  1. ANTI-EGFL7 [Suspect]
     Indication: NEOPLASM
     Dosage: 2.0 MG/KG, Q2W
     Route: 042
     Dates: start: 20100301
  2. BEVACIZUMAB [Suspect]
     Indication: NEOPLASM
     Dosage: 10 MG/KG, Q2W
     Route: 042
     Dates: start: 20100301
  3. PROTONIX [Concomitant]
     Indication: DRUG USE FOR UNKNOWN INDICATION
     Dosage: 40 MG, QD
  4. SYNTHROID [Concomitant]
     Indication: DRUG USE FOR UNKNOWN INDICATION
  5. CELEBREX [Concomitant]
     Indication: DRUG USE FOR UNKNOWN INDICATION
     Dosage: 200 MG, QD
  6. ANDROGEN PATCH [Concomitant]
     Indication: DRUG USE FOR UNKNOWN INDICATION
  7. LYRICA [Concomitant]
     Indication: DRUG USE FOR UNKNOWN INDICATION
     Dosage: 75 MG, QAM
  8. LYRICA [Concomitant]
     Dosage: 150 MG, QPM
  9. FENTANYL-75 [Concomitant]
     Indication: DRUG USE FOR UNKNOWN INDICATION
     Dosage: 50 A?G/HR, Q3D
  10. DILAUDID [Concomitant]
     Indication: ARTHRALGIA

REACTIONS (1)
  - MALLORY-WEISS SYNDROME [None]
